FAERS Safety Report 11925330 (Version 2)
Quarter: 2016Q1

REPORT INFORMATION
  Report Type: Spontaneous
  Country: US (occurrence: US)
  Receive Date: 20160118
  Receipt Date: 20160203
  Transmission Date: 20160526
  Serious: Yes (Other)
  Sender: FDA-Public Use
  Company Number: US-BAUSCH-BL-2016-001485

PATIENT
  Age: 60 Year
  Sex: Female

DRUGS (6)
  1. LISINOPRIL. [Concomitant]
     Active Substance: LISINOPRIL
     Indication: HYPERTENSION
  2. FLUOROURACIL. [Suspect]
     Active Substance: FLUOROURACIL
     Dosage: OVER 46 HOURS
     Route: 042
  3. LISINOPRIL. [Concomitant]
     Active Substance: LISINOPRIL
  4. FLUOROURACIL. [Suspect]
     Active Substance: FLUOROURACIL
     Indication: ADENOCARCINOMA OF COLON
     Dosage: CYCLICALLIY ADMINISTED BY IV PUSH WITHIN THE FOLFOX REGIMEN
     Route: 042
     Dates: start: 201210
  5. OXALIPLATIN. [Suspect]
     Active Substance: OXALIPLATIN
     Indication: ADENOCARCINOMA OF COLON
     Dosage: CYCLICAL?FOLFOX REGIMEN
     Route: 065
     Dates: start: 201210
  6. LEUCOVORIN. [Suspect]
     Active Substance: LEUCOVORIN
     Indication: ADENOCARCINOMA OF COLON
     Dosage: FOLFOX REGIMEN
     Route: 065
     Dates: start: 201210

REACTIONS (6)
  - Factor VII deficiency [Unknown]
  - Coagulopathy [Recovering/Resolving]
  - Mucosal inflammation [Unknown]
  - Pancytopenia [Unknown]
  - Dehydration [Unknown]
  - Oesophagitis [Unknown]

NARRATIVE: CASE EVENT DATE: 2012
